FAERS Safety Report 14688354 (Version 2)
Quarter: 2018Q2

REPORT INFORMATION
  Report Type: Report from Study
  Country: US (occurrence: US)
  Receive Date: 20180328
  Receipt Date: 20180404
  Transmission Date: 20180711
  Serious: Yes (Hospitalization)
  Sender: FDA-Public Use
  Company Number: US-ROCHE-2089696

PATIENT
  Age: 56 Year
  Sex: Female
  Weight: 82.1 kg

DRUGS (6)
  1. FLU VACCINE [Concomitant]
     Active Substance: INFLUENZA VIRUS VACCINE
     Route: 030
     Dates: start: 20180306, end: 20180306
  2. AMLODIPINE [Concomitant]
     Active Substance: AMLODIPINE BESYLATE
     Dosage: AS NEEDED
     Route: 048
     Dates: start: 20180306
  3. ATEZOLIZUMAB. [Suspect]
     Active Substance: ATEZOLIZUMAB
     Indication: TRANSITIONAL CELL CARCINOMA
     Dosage: ATEZOLIZUMAB WILL BE ADMINISTERED AS IV INFUSION AT A DOSE OF 1200 MILLIGRAMS ON DAY 1 OF EACH 21-DA
     Route: 042
     Dates: start: 20171010
  4. AMLODIPINE [Concomitant]
     Active Substance: AMLODIPINE BESYLATE
     Indication: HYPERTENSION
     Route: 048
     Dates: start: 20171212, end: 20180306
  5. IBUPROFEN. [Concomitant]
     Active Substance: IBUPROFEN
     Indication: MYALGIA
     Route: 048
     Dates: start: 20180123
  6. TYLENOL [Concomitant]
     Active Substance: ACETAMINOPHEN
     Indication: MYALGIA
     Dosage: DOSE: MG; UNIT VALUE NOT REPORTED.
     Route: 048
     Dates: start: 20180123

REACTIONS (1)
  - Enterovesical fistula [Not Recovered/Not Resolved]

NARRATIVE: CASE EVENT DATE: 20180309
